FAERS Safety Report 10506674 (Version 11)
Quarter: 2015Q2

REPORT INFORMATION
  Report Type: Report from Study
  Country: CA (occurrence: CA)
  Receive Date: 20141009
  Receipt Date: 20150609
  Transmission Date: 20150821
  Serious: Yes (Hospitalization, Other)
  Sender: FDA-Public Use
  Company Number: CA-ROCHE-1145057

PATIENT
  Age: 60 Year
  Sex: Female
  Weight: 97.5 kg

DRUGS (19)
  1. FLUOXETINE [Concomitant]
     Active Substance: FLUOXETINE\FLUOXETINE HYDROCHLORIDE
  2. FOLIC ACID. [Concomitant]
     Active Substance: FOLIC ACID
  3. CETIRIZINE [Concomitant]
     Active Substance: CETIRIZINE HYDROCHLORIDE
  4. DIPHENHYDRAMINE HCL [Concomitant]
     Active Substance: DIPHENHYDRAMINE HYDROCHLORIDE
     Route: 048
     Dates: start: 20120919
  5. METHYLPREDNISOLONE. [Concomitant]
     Active Substance: METHYLPREDNISOLONE
     Indication: PREMEDICATION
     Route: 042
     Dates: start: 20120919
  6. CELEBREX [Concomitant]
     Active Substance: CELECOXIB
  7. ACETAMINOPHEN. [Concomitant]
     Active Substance: ACETAMINOPHEN
     Route: 048
     Dates: start: 20140919
  8. RITUXAN [Suspect]
     Active Substance: RITUXIMAB
     Indication: RHEUMATOID ARTHRITIS
     Dosage: DAY 1 AND DAY 15, LAST DOSE ON 18/NOV/2014
     Route: 042
     Dates: start: 20120919
  9. GRAVOL [Concomitant]
     Active Substance: DIMENHYDRINATE
  10. ACETAMINOPHEN. [Concomitant]
     Active Substance: ACETAMINOPHEN
     Indication: PREMEDICATION
     Route: 048
     Dates: start: 20120919
  11. PREDNISONE. [Concomitant]
     Active Substance: PREDNISONE
  12. AVAMYS [Concomitant]
     Active Substance: FLUTICASONE FUROATE
  13. CALTRATE [Concomitant]
     Active Substance: CALCIUM CARBONATE
  14. METHOTREXATE [Concomitant]
     Active Substance: METHOTREXATE
  15. ADVAIR HFA [Concomitant]
     Active Substance: FLUTICASONE PROPIONATE\SALMETEROL XINAFOATE
  16. ACTONEL [Concomitant]
     Active Substance: RISEDRONATE SODIUM
  17. RABEPRAZOLE [Concomitant]
     Active Substance: RABEPRAZOLE
  18. LIPITOR [Concomitant]
     Active Substance: ATORVASTATIN CALCIUM
  19. SALBUTAMOL [Concomitant]
     Active Substance: ALBUTEROL

REACTIONS (33)
  - Blood pressure increased [Unknown]
  - Oxygen saturation decreased [Unknown]
  - Headache [Not Recovered/Not Resolved]
  - Infusion related reaction [Unknown]
  - Activities of daily living impaired [Unknown]
  - Eye pruritus [Recovered/Resolved]
  - Blood glucose increased [Unknown]
  - Arthralgia [Unknown]
  - Scar [Not Recovered/Not Resolved]
  - Plantar fasciitis [Unknown]
  - Respiratory rate increased [Unknown]
  - Spinal disorder [Unknown]
  - Cough [Not Recovered/Not Resolved]
  - Skin graft contracture [Not Recovered/Not Resolved]
  - Sensory disturbance [Not Recovered/Not Resolved]
  - Lacrimation increased [Recovered/Resolved]
  - Flushing [Not Recovered/Not Resolved]
  - Productive cough [Recovered/Resolved]
  - Rheumatoid lung [Not Recovered/Not Resolved]
  - Immunodeficiency [Unknown]
  - Benign neoplasm [Unknown]
  - Memory impairment [Not Recovered/Not Resolved]
  - Aphasia [Not Recovered/Not Resolved]
  - Nausea [Not Recovered/Not Resolved]
  - Drug ineffective [Unknown]
  - Hyperhidrosis [Not Recovered/Not Resolved]
  - Throat irritation [Recovered/Resolved]
  - Fatigue [Unknown]
  - Joint swelling [Unknown]
  - Insomnia [Recovered/Resolved]
  - General physical health deterioration [Not Recovered/Not Resolved]
  - Rheumatoid arthritis [Unknown]
  - Pain in extremity [Unknown]

NARRATIVE: CASE EVENT DATE: 20120919
